FAERS Safety Report 21656488 (Version 1)
Quarter: 2022Q4

REPORT INFORMATION
  Report Type: Spontaneous
  Country: US (occurrence: None)
  Receive Date: 20221128
  Receipt Date: 20221128
  Transmission Date: 20230113
  Serious: Yes (Death, Hospitalization, Other)
  Sender: FDA-Public Use
  Company Number: None

PATIENT
  Age: 77 Year
  Sex: Female
  Weight: 74.1 kg

DRUGS (1)
  1. BREYANZI [Suspect]
     Active Substance: LISOCABTAGENE MARALEUCEL
     Indication: Diffuse large B-cell lymphoma
     Dosage: FREQUENCY : ONCE;?
     Route: 042
     Dates: start: 20221107, end: 20221107

REACTIONS (4)
  - Pneumonia [None]
  - Immune effector cell-associated neurotoxicity syndrome [None]
  - Disease progression [None]
  - Cytokine release syndrome [None]

NARRATIVE: CASE EVENT DATE: 20221117
